FAERS Safety Report 25251046 (Version 1)
Quarter: 2025Q2

REPORT INFORMATION
  Report Type: Spontaneous
  Country: US (occurrence: None)
  Receive Date: 20250429
  Receipt Date: 20250429
  Transmission Date: 20250716
  Serious: Yes (Other)
  Sender: FDA-CTU
  Company Number: None

PATIENT
  Age: 51 Year
  Sex: Female

DRUGS (1)
  1. CIPROFLOXACIN AND DEXAMETHASONE [Suspect]
     Active Substance: CIPROFLOXACIN HYDROCHLORIDE\DEXAMETHASONE
     Dates: start: 20250404, end: 20250410

REACTIONS (8)
  - Headache [None]
  - Neck pain [None]
  - Disorientation [None]
  - Memory impairment [None]
  - Chest pain [None]
  - Hypoaesthesia [None]
  - Hypoaesthesia [None]
  - Muscular weakness [None]

NARRATIVE: CASE EVENT DATE: 20250404
